FAERS Safety Report 9868330 (Version 2)
Quarter: 2014Q1

REPORT INFORMATION
  Report Type: Spontaneous
  Country: AU (occurrence: AU)
  Receive Date: 20140204
  Receipt Date: 20140217
  Transmission Date: 20141002
  Serious: Yes (Hospitalization)
  Sender: FDA-Public Use
  Company Number: ALCN2014AU000896

PATIENT
  Age: 74 Year
  Sex: Male
  Weight: 83.2 kg

DRUGS (5)
  1. AZOPT [Suspect]
     Indication: GLAUCOMA
     Dosage: 1 GTT, BID
     Route: 047
     Dates: start: 20131001, end: 201401
  2. AZOPT [Suspect]
     Dosage: 1 GTT, BID
     Dates: start: 20140129
  3. FML [Concomitant]
     Dosage: 1 GTT, QD
     Route: 047
     Dates: start: 2013
  4. XALACOM [Concomitant]
     Indication: GLAUCOMA
     Dosage: 1 GTT, QD
     Route: 047
     Dates: start: 2012
  5. ENIDIN [Concomitant]
     Indication: GLAUCOMA
     Dosage: 1 GTT, BID
     Route: 047
     Dates: start: 2013

REACTIONS (9)
  - Cerebrovascular accident [Recovered/Resolved]
  - Blood pressure increased [Recovered/Resolved]
  - Fatigue [Recovered/Resolved]
  - Hemiparesis [Recovered/Resolved]
  - Paraesthesia [Recovered/Resolved]
  - Sensation of heaviness [Recovered/Resolved]
  - Dry mouth [Recovered/Resolved]
  - Hypoaesthesia oral [Not Recovered/Not Resolved]
  - Dysphagia [Recovered/Resolved]
